FAERS Safety Report 17807194 (Version 1)
Quarter: 2020Q2

REPORT INFORMATION
  Report Type: Spontaneous
  Country: TW (occurrence: TW)
  Receive Date: 20200520
  Receipt Date: 20200520
  Transmission Date: 20200714
  Serious: Yes (Other)
  Sender: FDA-Public Use
  Company Number: TW-SUN PHARMACEUTICAL INDUSTRIES LTD-2020RR-246955

PATIENT
  Age: 60 Year
  Sex: Female

DRUGS (4)
  1. GEMCITABINE. [Suspect]
     Active Substance: GEMCITABINE
     Indication: METASTASIS
  2. GEMCITABINE. [Suspect]
     Active Substance: GEMCITABINE
     Indication: TRANSITIONAL CELL CARCINOMA
     Dosage: 600 MILLIGRAM, UNK, 2 CYCLES
     Route: 065
  3. CARBOPLATIN. [Suspect]
     Active Substance: CARBOPLATIN
     Indication: TRANSITIONAL CELL CARCINOMA
     Dosage: 300 MILLIGRAM, UNK, 2 CYCLES
     Route: 065
  4. CARBOPLATIN. [Suspect]
     Active Substance: CARBOPLATIN
     Indication: METASTASIS

REACTIONS (6)
  - C-reactive protein increased [Unknown]
  - Pyrexia [Unknown]
  - Anaemia macrocytic [Unknown]
  - Pancytopenia [Unknown]
  - Abdominal pain [Recovered/Resolved]
  - Dermatitis herpetiformis [Unknown]
